FAERS Safety Report 4342911-1 (Version None)
Quarter: 2004Q2

REPORT INFORMATION
  Report Type: 
  Country: None (occurrence: None)
  Receive Date: 20040416
  Receipt Date: 20040405
  Transmission Date: 20050107
  Serious: Yes (Death, Life-Threatening)
  Sender: FDA-Public Use
  Company Number: 2004193991JP

PATIENT
  Age: 65 Year
  Sex: Male
  Weight: 54 kg

DRUGS (6)
  1. CAMPTOSAR [Suspect]
     Indication: NON-SMALL CELL LUNG CANCER
     Dosage: SEE IMAGE
     Route: 041
     Dates: start: 20031222, end: 20031222
  2. CAMPTOSAR [Suspect]
     Indication: NON-SMALL CELL LUNG CANCER
     Dosage: SEE IMAGE
     Route: 041
     Dates: start: 20031229, end: 20031229
  3. RANDA [Concomitant]
  4. TIENAM (CILASTATIN, IMIPENEM) [Concomitant]
  5. DECADRON [Concomitant]
  6. KYTRIL [Concomitant]

REACTIONS (16)
  - ACIDOSIS [None]
  - BLOOD POTASSIUM DECREASED [None]
  - BLOOD PRESSURE DECREASED [None]
  - BONE MARROW DEPRESSION [None]
  - CARDIO-RESPIRATORY ARREST [None]
  - CHILLS [None]
  - DIARRHOEA [None]
  - DISSEMINATED INTRAVASCULAR COAGULATION [None]
  - DRUG INEFFECTIVE [None]
  - METASTASES TO LYMPH NODES [None]
  - MOUTH BREATHING [None]
  - NAUSEA [None]
  - PURPURA [None]
  - SEPSIS [None]
  - TACHYCARDIA [None]
  - TREATMENT NONCOMPLIANCE [None]
